FAERS Safety Report 8269199-3 (Version None)
Quarter: 2012Q2

REPORT INFORMATION
  Report Type: 
  Country: None (occurrence: None)
  Receive Date: 20120409
  Receipt Date: 20120404
  Transmission Date: 20120825
  Serious: Yes (Death, Other)
  Sender: FDA-Public Use
  Company Number: CHPA2012BR006365

PATIENT
  Sex: Female
  Weight: 60 kg

DRUGS (3)
  1. NUPERCAINAL [Suspect]
     Indication: ARTHROPOD BITE
     Dosage: 1 DF, PRN, MORE THAN 10 YEARS
     Route: 061
  2. BEROTEC [Concomitant]
     Dosage: UNK, UNK
  3. BRONCHODILATORS [Concomitant]
     Dosage: UNK, UNK

REACTIONS (5)
  - EMPHYSEMA [None]
  - CARDIAC DISORDER [None]
  - OFF LABEL USE [None]
  - CONCOMITANT DISEASE AGGRAVATED [None]
  - BRONCHITIS [None]
